FAERS Safety Report 22628357 (Version 1)
Quarter: 2023Q2

REPORT INFORMATION
  Report Type: Spontaneous
  Country: US (occurrence: None)
  Receive Date: 20230621
  Receipt Date: 20230621
  Transmission Date: 20230722
  Serious: Yes (Death)
  Sender: FDA-Public Use
  Company Number: None

PATIENT
  Age: 77 Year
  Sex: Female
  Weight: 52.65 kg

DRUGS (14)
  1. REVLIMID [Suspect]
     Active Substance: LENALIDOMIDE
     Indication: Plasma cell myeloma
     Dosage: FREQUENCY : DAILY;?
     Route: 048
     Dates: start: 20230511, end: 20230619
  2. ACYCLOVIR [Concomitant]
     Active Substance: ACYCLOVIR
  3. ADVAIR HFA [Concomitant]
     Active Substance: FLUTICASONE PROPIONATE\SALMETEROL XINAFOATE
  4. Combivent 20mcg [Concomitant]
  5. COMPAZINE [Concomitant]
     Active Substance: PROCHLORPERAZINE MALEATE
  6. VITAMIN B12 [Concomitant]
     Active Substance: CYANOCOBALAMIN
  7. CYCLOBENZAPRINE [Concomitant]
     Active Substance: CYCLOBENZAPRINE
  8. DEXAMETHASONE [Concomitant]
     Active Substance: DEXAMETHASONE
  9. LORAZEPAM [Concomitant]
     Active Substance: LORAZEPAM
  10. OMEPRAZOLE [Concomitant]
     Active Substance: OMEPRAZOLE
  11. odanesetron 8mg [Concomitant]
  12. RESTASIS [Concomitant]
     Active Substance: CYCLOSPORINE
  13. SINGULAIR [Concomitant]
     Active Substance: MONTELUKAST SODIUM
  14. ZOLOFT [Concomitant]
     Active Substance: SERTRALINE HYDROCHLORIDE

REACTIONS (1)
  - Organ failure [None]

NARRATIVE: CASE EVENT DATE: 20230619
